FAERS Safety Report 24544659 (Version 1)
Quarter: 2024Q4

REPORT INFORMATION
  Report Type: Spontaneous
  Country: US (occurrence: US)
  Receive Date: 20241024
  Receipt Date: 20241024
  Transmission Date: 20250114
  Serious: Yes (Life-Threatening, Disabling, Other)
  Sender: CHATTEM
  Company Number: US-OPELLA-2024OHG036035

PATIENT
  Age: 60 Year
  Sex: Male

DRUGS (1)
  1. GOLD BOND MEDICATED ORIGINAL STRENGTH BODY [Suspect]
     Active Substance: MENTHOL
     Indication: Product used for unknown indication

REACTIONS (6)
  - Pleural mesothelioma [Unknown]
  - Injury [Unknown]
  - Exposure to chemical pollution [Unknown]
  - Pain [Unknown]
  - Anxiety [Unknown]
  - Quality of life decreased [Unknown]

NARRATIVE: CASE EVENT DATE: 19870101
